FAERS Safety Report 23080566 (Version 2)
Quarter: 2023Q4

REPORT INFORMATION
  Report Type: Other
  Country: US (occurrence: None)
  Receive Date: 20231018
  Receipt Date: 20231027
  Transmission Date: 20240110
  Serious: Yes (Other)
  Sender: FDA-Public Use
  Company Number: US-ROCHE-2575662

PATIENT
  Age: 36 Year
  Sex: Female
  Weight: 109.87 kg

DRUGS (11)
  1. OCREVUS [Suspect]
     Active Substance: OCRELIZUMAB
     Indication: Relapsing multiple sclerosis
     Dosage: DATE OF TREATMENT: 20/SEP/2019
     Route: 042
     Dates: start: 20190904
  2. BACLOFEN [Concomitant]
     Active Substance: BACLOFEN
  3. CIPROFLOXACIN [Concomitant]
     Active Substance: CIPROFLOXACIN
  4. VITAMIN D3 [Concomitant]
     Active Substance: CHOLECALCIFEROL
  5. DICLOFENAC [Concomitant]
     Active Substance: DICLOFENAC
  6. GABAPENTIN [Concomitant]
     Active Substance: GABAPENTIN
  7. MELOXICAM [Concomitant]
     Active Substance: MELOXICAM
  8. OXYBUTYNIN [Concomitant]
     Active Substance: OXYBUTYNIN
  9. SODIUM CHLORIDE [Concomitant]
     Active Substance: SODIUM CHLORIDE
  10. ZOLPIDEM [Concomitant]
     Active Substance: ZOLPIDEM TARTRATE
  11. TYSABRI [Concomitant]
     Active Substance: NATALIZUMAB

REACTIONS (5)
  - Urinary tract infection [Unknown]
  - Nasopharyngitis [Not Recovered/Not Resolved]
  - Fall [Unknown]
  - Pain [Unknown]
  - Headache [Unknown]
